FAERS Safety Report 18056980 (Version 1)
Quarter: 2020Q3

REPORT INFORMATION
  Report Type: Other
  Country: AR (occurrence: AR)
  Receive Date: 20200723
  Receipt Date: 20200723
  Transmission Date: 20201103
  Serious: Yes (Hospitalization)
  Sender: FDA-Public Use
  Company Number: AR-ROCHE-2645973

PATIENT
  Sex: Male

DRUGS (2)
  1. XOLAIR [Suspect]
     Active Substance: OMALIZUMAB
     Route: 065
     Dates: start: 20180716
  2. XOLAIR [Suspect]
     Active Substance: OMALIZUMAB
     Indication: ASTHMA
     Dosage: 2 DF, QMO ((300))
     Route: 065
     Dates: start: 201807

REACTIONS (5)
  - Haemorrhoids [Recovered/Resolved]
  - Anaemia [Recovered/Resolved]
  - Respiratory disorder [Recovered/Resolved]
  - Amnesia [Unknown]
  - Bronchospasm [Recovering/Resolving]
